FAERS Safety Report 6663207-9 (Version None)
Quarter: 2010Q1

REPORT INFORMATION
  Report Type: 
  Country: None (occurrence: None)
  Receive Date: 20100330
  Receipt Date: 20100330
  Transmission Date: 20100710
  Serious: Yes (Other)
  Sender: FDA-Public Use
  Company Number: None

PATIENT
  Sex: Female
  Weight: 68.9467 kg

DRUGS (1)
  1. MYSOLINE [Suspect]
     Indication: TREMOR
     Dosage: ONE AM ONE HS

REACTIONS (2)
  - CONDITION AGGRAVATED [None]
  - TREMOR [None]
